FAERS Safety Report 9909987 (Version 2)
Quarter: 2014Q1

REPORT INFORMATION
  Report Type: Spontaneous
  Country: US (occurrence: US)
  Receive Date: 20140219
  Receipt Date: 20140219
  Transmission Date: 20141002
  Serious: No
  Sender: FDA-Public Use
  Company Number: US-GILEAD-2012-0055213

PATIENT
  Sex: Male
  Weight: 83.9 kg

DRUGS (21)
  1. LETAIRIS [Suspect]
     Indication: PULMONARY HYPERTENSION
     Dosage: 5 MG, UNK
     Route: 048
     Dates: start: 20111125
  2. LETAIRIS [Suspect]
     Dosage: 10 UNK, UNK
     Route: 048
  3. PAXIL [Concomitant]
  4. COLON HERBAL CLEANSER [Concomitant]
  5. METOLAZONE [Concomitant]
  6. SIMVASTATIN [Concomitant]
  7. VITAMIN B-12 [Concomitant]
  8. PAROXETINE HCL [Concomitant]
  9. REVATIO [Concomitant]
  10. VITAMIN D2 [Concomitant]
  11. ASPIRIN [Concomitant]
  12. LOVAZA [Concomitant]
  13. ALPHAGAN P [Concomitant]
  14. FENOFIBRATE [Concomitant]
  15. PEGBLEND [Concomitant]
  16. OMEPRAZOLE [Concomitant]
  17. METOPROLOL TARTRATE [Concomitant]
  18. LASIX                              /00032601/ [Concomitant]
  19. DOCUSATE SODIUM [Concomitant]
  20. KLOR-CON M10 [Concomitant]
  21. TRICOR                             /00090101/ [Concomitant]

REACTIONS (1)
  - Dyspnoea [Unknown]
